FAERS Safety Report 13079756 (Version 1)
Quarter: 2017Q1

REPORT INFORMATION
  Report Type: Report from Study
  Country: US (occurrence: US)
  Receive Date: 20170103
  Receipt Date: 20170103
  Transmission Date: 20170428
  Serious: Yes (Death, Other)
  Sender: FDA-Public Use
  Company Number: US-TAKEDA-2016MPI011125

PATIENT

DRUGS (1)
  1. VELCADE [Suspect]
     Active Substance: BORTEZOMIB
     Indication: LEUKAEMIA RECURRENT
     Dosage: UNK, 2/WEEK
     Route: 042

REACTIONS (5)
  - Renal failure [Unknown]
  - Hypoxia [Unknown]
  - Death [Fatal]
  - Febrile neutropenia [Unknown]
  - Hypotension [Unknown]
